FAERS Safety Report 4884161-6 (Version None)
Quarter: 2006Q1

REPORT INFORMATION
  Report Type: 
  Country: None (occurrence: None)
  Receive Date: 20060118
  Receipt Date: 20050609
  Transmission Date: 20060701
  Serious: Yes (Hospitalization, Other)
  Sender: FDA-Public Use
  Company Number: US-MERCK-0506USA01561

PATIENT
  Age: 49 Year
  Sex: Male

DRUGS (1)
  1. VIOXX [Suspect]
     Route: 065

REACTIONS (14)
  - ABDOMINAL PAIN [None]
  - ASTHMA [None]
  - BLOOD PRESSURE INCREASED [None]
  - BRAIN STEM INFARCTION [None]
  - CEREBROVASCULAR ACCIDENT [None]
  - CHEST PAIN [None]
  - DIARRHOEA [None]
  - HEADACHE [None]
  - HYPOAESTHESIA [None]
  - HYPOAESTHESIA ORAL [None]
  - NAUSEA [None]
  - NEUROLOGICAL SYMPTOM [None]
  - TRANSIENT ISCHAEMIC ATTACK [None]
  - VOMITING [None]
